FAERS Safety Report 9672047 (Version 1)
Quarter: 2013Q4

REPORT INFORMATION
  Report Type: Report from Study
  Country: AT (occurrence: AT)
  Receive Date: 20131106
  Receipt Date: 20131106
  Transmission Date: 20140711
  Serious: Yes (Other)
  Sender: FDA-Public Use
  Company Number: AT-GLAXOSMITHKLINE-B0940018A

PATIENT
  Age: 78 Year
  Sex: Male
  Weight: 75.2 kg

DRUGS (3)
  1. MELPHALAN [Suspect]
     Indication: PLASMA CELL MYELOMA
     Dosage: 16MG PER DAY
     Route: 065
     Dates: start: 20100430, end: 20100618
  2. THALIDOMIDE [Suspect]
     Indication: PLASMA CELL MYELOMA
     Dosage: 100MG PER DAY
     Route: 048
     Dates: start: 20100430, end: 20100618
  3. PREDNISONE [Suspect]
     Indication: PLASMA CELL MYELOMA
     Dosage: 155MG PER DAY
     Route: 065
     Dates: start: 20100430, end: 20100618

REACTIONS (1)
  - Squamous cell carcinoma of skin [Recovered/Resolved]
